FAERS Safety Report 21383415 (Version 1)
Quarter: 2022Q3

REPORT INFORMATION
  Report Type: Spontaneous
  Country: US (occurrence: US)
  Receive Date: 20220927
  Receipt Date: 20220927
  Transmission Date: 20221027
  Serious: No
  Sender: FDA-Public Use
  Company Number: US-MYLANLABS-2022M1095451

PATIENT
  Sex: Male

DRUGS (2)
  1. YUPELRI [Suspect]
     Active Substance: REVEFENACIN
     Indication: Product used for unknown indication
     Dosage: UNK
     Route: 055
     Dates: start: 20220915
  2. BREO ELLIPTA [Concomitant]
     Active Substance: FLUTICASONE FUROATE\VILANTEROL TRIFENATATE
     Dosage: UNK,100/25 MCG
     Route: 065

REACTIONS (1)
  - Asthenia [Recovering/Resolving]

NARRATIVE: CASE EVENT DATE: 20220901
